FAERS Safety Report 14048286 (Version 1)
Quarter: 2017Q4

REPORT INFORMATION
  Report Type: Report from Study
  Country: US (occurrence: US)
  Receive Date: 20171005
  Receipt Date: 20171005
  Transmission Date: 20180321
  Serious: No
  Sender: FDA-Public Use
  Company Number: US-RETROPHIN, INC.-2017RTN00100

PATIENT
  Sex: Male

DRUGS (1)
  1. CHOLBAM [Suspect]
     Active Substance: CHOLIC ACID
     Indication: BILIARY TRACT DISORDER
     Dosage: 750 MG, AS DIRECTED
     Dates: start: 20150515

REACTIONS (3)
  - Hepatomegaly [Unknown]
  - Drug ineffective [Unknown]
  - Drug dose omission [Unknown]
